FAERS Safety Report 7738502-2 (Version None)
Quarter: 2011Q3

REPORT INFORMATION
  Report Type: 
  Country: None (occurrence: None)
  Receive Date: 20110906
  Receipt Date: 20110829
  Transmission Date: 20111222
  Serious: Yes (Hospitalization)
  Sender: FDA-Public Use
  Company Number: 1000023218

PATIENT
  Sex: Female

DRUGS (1)
  1. DALIRESP [Suspect]
     Dates: start: 20110701

REACTIONS (5)
  - FATIGUE [None]
  - DIARRHOEA [None]
  - DEHYDRATION [None]
  - CARDIAC FAILURE [None]
  - HAEMOGLOBIN DECREASED [None]
